FAERS Safety Report 16349653 (Version 1)
Quarter: 2019Q2

REPORT INFORMATION
  Report Type: Spontaneous
  Country: AR (occurrence: AR)
  Receive Date: 20190523
  Receipt Date: 20190523
  Transmission Date: 20190711
  Serious: Yes (Hospitalization)
  Sender: FDA-Public Use
  Company Number: AR-PFIZER INC-2019214037

PATIENT
  Age: 62 Year
  Sex: Female

DRUGS (1)
  1. IBRANCE [Suspect]
     Active Substance: PALBOCICLIB
     Indication: BREAST CANCER METASTATIC
     Dosage: 125 MG, CYCLIC (DAILY, SCHEME 3X1)
     Dates: start: 20181010, end: 20190114

REACTIONS (2)
  - Seizure [Recovered/Resolved]
  - Neoplasm progression [Unknown]

NARRATIVE: CASE EVENT DATE: 20190502
